FAERS Safety Report 21460870 (Version 1)
Quarter: 2022Q4

REPORT INFORMATION
  Report Type: Report from Study
  Country: US (occurrence: US)
  Receive Date: 20221015
  Receipt Date: 20221015
  Transmission Date: 20230112
  Serious: No
  Sender: FDA-Public Use
  Company Number: US-ABBVIE-22K-163-4503851-00

PATIENT
  Sex: Female

DRUGS (3)
  1. SKYRIZI [Suspect]
     Active Substance: RISANKIZUMAB-RZAA
     Indication: Psoriasis
     Dosage: WEEK 0?FORM STRENGTH 150 MILLIGRAM
     Route: 058
     Dates: start: 20220728, end: 20220728
  2. SKYRIZI [Suspect]
     Active Substance: RISANKIZUMAB-RZAA
     Dosage: WEEK 4?FIRST ADMIN DATE AUG 2022, LAST ADMIN DATE AUG 2022?FORM STRENGTH 150 MILLIGRAM
     Route: 058
  3. SKYRIZI [Suspect]
     Active Substance: RISANKIZUMAB-RZAA
     Dosage: FORM STRENGTH 150 MILLIGRAM
     Route: 058

REACTIONS (4)
  - Abdominal pain lower [Unknown]
  - Nephrolithiasis [Unknown]
  - Psoriasis [Unknown]
  - Nausea [Unknown]
